FAERS Safety Report 8483966-2 (Version None)
Quarter: 2012Q3

REPORT INFORMATION
  Report Type: 
  Country: None (occurrence: None)
  Receive Date: 20120703
  Receipt Date: 20120628
  Transmission Date: 20120928
  Serious: No
  Sender: FDA-Public Use
  Company Number: US-PFIZER INC-2012143492

PATIENT
  Sex: Male
  Weight: 83.9 kg

DRUGS (4)
  1. IBUPROFEN (ADVIL) [Suspect]
     Indication: BACK PAIN
  2. IBUPROFEN (ADVIL) [Suspect]
     Indication: HEADACHE
     Dosage: 200 MG, AS NEEDED
     Route: 048
     Dates: start: 20120501
  3. IBUPROFEN (ADVIL) [Suspect]
     Indication: PAIN
  4. LEVOTHROID [Concomitant]
     Indication: THYROID DISORDER
     Dosage: 25 UG, DAILY

REACTIONS (3)
  - PRODUCT ODOUR ABNORMAL [None]
  - POOR QUALITY DRUG ADMINISTERED [None]
  - NAUSEA [None]
